FAERS Safety Report 6866293-6 (Version None)
Quarter: 2010Q2

REPORT INFORMATION
  Report Type: 
  Country: None (occurrence: None)
  Receive Date: 20100601
  Receipt Date: 20100520
  Transmission Date: 20101027
  Serious: No
  Sender: FDA-Public Use
  Company Number: 2010-00460

PATIENT
  Age: 24 Year
  Sex: Female
  Weight: 61.2356 kg

DRUGS (1)
  1. ZICAM INTENSE SINUS RELIEF [Suspect]
     Dosage: TID X 3 DAYS
     Dates: start: 20100517, end: 20100520

REACTIONS (2)
  - AGEUSIA [None]
  - ANOSMIA [None]
